FAERS Safety Report 21559425 (Version 1)
Quarter: 2022Q4

REPORT INFORMATION
  Report Type: Spontaneous
  Country: US (occurrence: None)
  Receive Date: 20221104
  Receipt Date: 20221104
  Transmission Date: 20230112
  Serious: Yes (Other)
  Sender: FDA-Public Use
  Company Number: None

PATIENT
  Age: 97 Year
  Sex: Male
  Weight: 79.2 kg

DRUGS (1)
  1. PAXLOVID [Suspect]
     Active Substance: NIRMATRELVIR\RITONAVIR
     Indication: COVID-19
     Dates: start: 20221028, end: 20221031

REACTIONS (4)
  - Mouth swelling [None]
  - Lip swelling [None]
  - Swollen tongue [None]
  - Infusion related reaction [None]

NARRATIVE: CASE EVENT DATE: 20221031
